FAERS Safety Report 5827065-4 (Version None)
Quarter: 2008Q3

REPORT INFORMATION
  Report Type: 
  Country: None (occurrence: None)
  Receive Date: 20080730
  Receipt Date: 20080723
  Transmission Date: 20090109
  Serious: Yes (Other)
  Sender: FDA-Public Use
  Company Number: B0419416A

PATIENT
  Sex: Male

DRUGS (2)
  1. SEROXAT [Suspect]
     Dates: start: 20001019
  2. TEMAZEPAM [Concomitant]

REACTIONS (4)
  - ADVERSE EVENT [None]
  - ANXIETY [None]
  - DRUG DEPENDENCE [None]
  - WITHDRAWAL SYNDROME [None]
